FAERS Safety Report 5337325-1 (Version None)
Quarter: 2007Q2

REPORT INFORMATION
  Report Type: 
  Country: None (occurrence: None)
  Receive Date: 20070529
  Receipt Date: 20070517
  Transmission Date: 20071010
  Serious: Yes (Other)
  Sender: FDA-Public Use
  Company Number: US-PFIZER INC-2007040865

PATIENT
  Sex: Male
  Weight: 70.3 kg

DRUGS (4)
  1. CHANTIX [Suspect]
     Indication: SMOKING CESSATION THERAPY
  2. DIGOXIN [Concomitant]
  3. PEPCID [Concomitant]
  4. STRATTERA [Concomitant]

REACTIONS (5)
  - COLITIS ULCERATIVE [None]
  - CONSTIPATION [None]
  - DISCOMFORT [None]
  - HAEMATOCHEZIA [None]
  - SPEECH DISORDER [None]
